FAERS Safety Report 21626109 (Version 2)
Quarter: 2022Q4

REPORT INFORMATION
  Report Type: Spontaneous
  Country: US (occurrence: None)
  Receive Date: 20221122
  Receipt Date: 20221222
  Transmission Date: 20230112
  Serious: No
  Sender: FDA-Public Use
  Company Number: 2022A359485

PATIENT
  Age: 690 Month
  Sex: Female

DRUGS (4)
  1. PULMICORT FLEXHALER [Suspect]
     Active Substance: BUDESONIDE
     Indication: COVID-19
     Dosage: 180.0UG AS REQUIRED
     Route: 055
     Dates: start: 202112
  2. PULMICORT FLEXHALER [Suspect]
     Active Substance: BUDESONIDE
     Indication: Asthma
     Dosage: 180.0UG AS REQUIRED
     Route: 055
     Dates: start: 202112
  3. PULMICORT FLEXHALER [Suspect]
     Active Substance: BUDESONIDE
     Indication: COVID-19
     Dosage: 180.0UG AS REQUIRED
     Route: 055
     Dates: start: 20221025
  4. PULMICORT FLEXHALER [Suspect]
     Active Substance: BUDESONIDE
     Indication: Asthma
     Dosage: 180.0UG AS REQUIRED
     Route: 055
     Dates: start: 20221025

REACTIONS (6)
  - Asthma [Unknown]
  - Fatigue [Unknown]
  - Product use issue [Unknown]
  - Intentional device misuse [Unknown]
  - Drug dose omission by device [Unknown]
  - Device defective [Unknown]

NARRATIVE: CASE EVENT DATE: 20211201
